FAERS Safety Report 5038784-4 (Version None)
Quarter: 2006Q2

REPORT INFORMATION
  Report Type: 
  Country: None (occurrence: None)
  Receive Date: 20060626
  Receipt Date: 20060609
  Transmission Date: 20061013
  Serious: Yes (Hospitalization)
  Sender: FDA-Public Use
  Company Number: 226476

PATIENT
  Age: 75 Year
  Sex: Female

DRUGS (5)
  1. AVASTIN [Suspect]
     Indication: COLORECTAL CANCER METASTATIC
     Dosage: 412 MG, Q3W, INTRAVENOUS
     Route: 042
     Dates: start: 20050706
  2. PANTOPRAZOLE SODIUM [Concomitant]
  3. BROMOPRIDE (BROMOPRIDE) [Concomitant]
  4. CENTRUM SILVER (MINERALS NOS, MULTIVITAMINS NOS) [Concomitant]
  5. ATENOLOL [Concomitant]

REACTIONS (3)
  - ANAEMIA [None]
  - ASTHENIA [None]
  - GENERAL PHYSICAL HEALTH DETERIORATION [None]
